FAERS Safety Report 9688798 (Version 2)
Quarter: 2013Q4

REPORT INFORMATION
  Report Type: Report from Study
  Country: JP (occurrence: JP)
  Receive Date: 20131114
  Receipt Date: 20131114
  Transmission Date: 20140711
  Serious: Yes (Other)
  Sender: FDA-Public Use
  Company Number: JP-009507513-1305JPN004235

PATIENT
  Age: 32 Year
  Sex: Female

DRUGS (25)
  1. TEMOZOLOMIDE [Suspect]
     Indication: ANAPLASTIC ASTROCYTOMA
     Dosage: 150 MG/M2, QD
     Route: 048
     Dates: start: 20090712, end: 20090716
  2. TEMOZOLOMIDE [Suspect]
     Dosage: 200 MG/M2, QD
     Route: 048
     Dates: start: 20090809, end: 20090813
  3. TEMOZOLOMIDE [Suspect]
     Dosage: 200 MG/M2, QD
     Route: 048
     Dates: start: 20091101, end: 20091105
  4. TEMOZOLOMIDE [Suspect]
     Dosage: 200 MG/M2, QD
     Route: 048
     Dates: start: 20100130, end: 20100203
  5. TEMOZOLOMIDE [Suspect]
     Dosage: 200 MG/M2, QD
     Route: 048
     Dates: start: 20100404, end: 20100408
  6. TEMOZOLOMIDE [Suspect]
     Dosage: 200 MG/M2, QD
     Route: 048
     Dates: start: 20100613, end: 20100617
  7. TEMOZOLOMIDE [Suspect]
     Dosage: 200 MG/M2, QD
     Route: 048
     Dates: start: 20100808, end: 20100812
  8. TEMOZOLOMIDE [Suspect]
     Dosage: 200 MG/M2, QD
     Route: 048
     Dates: start: 20101205, end: 20101209
  9. TEMOZOLOMIDE [Suspect]
     Dosage: 200 MG/M2, QD
     Route: 048
     Dates: start: 20110223, end: 20110227
  10. TEMOZOLOMIDE [Suspect]
     Dosage: 200 MG/M2, QD
     Route: 048
     Dates: start: 20110508, end: 20110512
  11. TEMOZOLOMIDE [Suspect]
     Dosage: 200 MG/M2, QD
     Route: 048
     Dates: start: 20110716, end: 20110720
  12. TEMOZOLOMIDE [Suspect]
     Dosage: 200 MG/M2, QD
     Route: 048
     Dates: start: 20111022, end: 20111026
  13. TEMOZOLOMIDE [Suspect]
     Dosage: 200 MG/M2, QD
     Route: 048
     Dates: start: 20111229, end: 20120102
  14. TEMOZOLOMIDE [Suspect]
     Dosage: 200 MG/M2, QD
     Route: 048
     Dates: start: 20120320, end: 20120324
  15. TEMOZOLOMIDE [Suspect]
     Dosage: 200 MG/M2, QD
     Route: 048
     Dates: start: 20120623, end: 20120627
  16. TEMOZOLOMIDE [Suspect]
     Dosage: 200 MG/M2, QD
     Route: 048
     Dates: start: 20121020, end: 20121024
  17. TEMOZOLOMIDE [Suspect]
     Dosage: 200 MG/M2, QD
     Route: 048
     Dates: start: 20121229, end: 20130102
  18. TEMOZOLOMIDE [Suspect]
     Dosage: 200 MG/M2, QD
     Route: 048
     Dates: start: 20130503, end: 20130507
  19. CLARITIN [Concomitant]
     Indication: HYPERSENSITIVITY
     Route: 048
  20. TOPINA [Concomitant]
     Indication: PRODUCT USED FOR UNKNOWN INDICATION
     Dosage: UNK
     Route: 048
     Dates: end: 20090904
  21. VOLTAREN [Concomitant]
     Indication: PRODUCT USED FOR UNKNOWN INDICATION
     Route: 048
  22. EXCEGRAN [Concomitant]
     Indication: PRODUCT USED FOR UNKNOWN INDICATION
     Route: 048
  23. CALONAL [Concomitant]
     Indication: PRODUCT USED FOR UNKNOWN INDICATION
     Route: 048
  24. MYSLEE [Concomitant]
     Indication: PRODUCT USED FOR UNKNOWN INDICATION
     Route: 048
  25. DEPAS [Concomitant]
     Indication: PRODUCT USED FOR UNKNOWN INDICATION
     Route: 048

REACTIONS (8)
  - Epilepsy [Recovered/Resolved]
  - Nausea [Not Recovered/Not Resolved]
  - Diarrhoea [Recovered/Resolved]
  - Decreased appetite [Not Recovered/Not Resolved]
  - Hallucination [Recovered/Resolved]
  - Depression [Not Recovered/Not Resolved]
  - Nasopharyngitis [Recovered/Resolved]
  - Depressive symptom [Recovered/Resolved]
